FAERS Safety Report 9613375 (Version 1)
Quarter: 2013Q4

REPORT INFORMATION
  Report Type: Spontaneous
  Country: DK (occurrence: None)
  Receive Date: 20131008
  Receipt Date: 20131008
  Transmission Date: 20140711
  Serious: Yes (Death, Congenital Anomaly)
  Sender: FDA-Public Use
  Company Number: CL-522-2013

PATIENT
  Sex: Male
  Weight: 3.7 kg

DRUGS (2)
  1. FLUCONAZOLE [Suspect]
     Route: 064
  2. FLUTICASONPROPIONET (FLIXONASE)-NASAL SPRAY [Suspect]
     Route: 064
     Dates: start: 2012, end: 2012

REACTIONS (2)
  - Coarctation of the aorta [None]
  - Maternal drugs affecting foetus [None]
